FAERS Safety Report 15327572 (Version 5)
Quarter: 2019Q4

REPORT INFORMATION
  Report Type: Spontaneous
  Country: US (occurrence: US)
  Receive Date: 20180828
  Receipt Date: 20191120
  Transmission Date: 20200122
  Serious: Yes (Hospitalization)
  Sender: FDA-Public Use
  Company Number: US-ACTELION-A-NJ2018-177773

PATIENT
  Age: 63 Year
  Sex: Female
  Weight: 62.13 kg

DRUGS (8)
  1. BACTRIM [Concomitant]
     Active Substance: SULFAMETHOXAZOLE\TRIMETHOPRIM
  2. IBUPROFEN. [Concomitant]
     Active Substance: IBUPROFEN
  3. GABAPENTIN. [Concomitant]
     Active Substance: GABAPENTIN
  4. ADCIRCA [Suspect]
     Active Substance: TADALAFIL
     Dosage: 1.5 TABS (30 MG), QD
     Route: 048
     Dates: start: 20150917
  5. OPSUMIT [Suspect]
     Active Substance: MACITENTAN
     Indication: PULMONARY HYPERTENSION
     Dosage: 10 MG, QD
     Route: 048
     Dates: start: 20150917
  6. ADCIRCA [Suspect]
     Active Substance: TADALAFIL
     Indication: PRODUCT USED FOR UNKNOWN INDICATION
     Dosage: 2 TABS (40 MG), QD
     Route: 048
     Dates: start: 20150917
  7. LOSARTAN. [Concomitant]
     Active Substance: LOSARTAN
  8. OPSUMIT [Suspect]
     Active Substance: MACITENTAN
     Dosage: 10 MG, QD
     Route: 048
     Dates: start: 20150917

REACTIONS (8)
  - Foot amputation [Recovering/Resolving]
  - Diabetic retinopathy [Recovering/Resolving]
  - Swelling [Unknown]
  - Anaemia [Unknown]
  - Wound complication [Recovering/Resolving]
  - Visual impairment [Recovering/Resolving]
  - Headache [Recovering/Resolving]
  - Localised infection [Recovering/Resolving]

NARRATIVE: CASE EVENT DATE: 201908
